FAERS Safety Report 4842624-3 (Version None)
Quarter: 2005Q4

REPORT INFORMATION
  Report Type: 
  Country: None (occurrence: None)
  Receive Date: 20051201
  Receipt Date: 20051128
  Transmission Date: 20060501
  Serious: Yes (Other)
  Sender: FDA-Public Use
  Company Number: JP-JPN-A20052878

PATIENT
  Age: 73 Year
  Sex: Male

DRUGS (2)
  1. ALLOPURINOL [Suspect]
     Route: 048
     Dates: start: 20010801, end: 20011101
  2. MODACIN [Suspect]
     Route: 042
     Dates: start: 20011101, end: 20011101

REACTIONS (1)
  - OCULOMUCOCUTANEOUS SYNDROME [None]
